FAERS Safety Report 5378989-6 (Version None)
Quarter: 2007Q3

REPORT INFORMATION
  Report Type: 
  Country: None (occurrence: None)
  Receive Date: 20070705
  Receipt Date: 20070702
  Transmission Date: 20080115
  Serious: Yes (Death, Other)
  Sender: FDA-Public Use
  Company Number: SA-BRISTOL-MYERS SQUIBB COMPANY-13832860

PATIENT
  Age: 21 Year
  Sex: Female

DRUGS (3)
  1. METHOTREXATE [Suspect]
     Indication: CHORIOCARCINOMA
     Route: 030
  2. PROPYLTHIOURACIL [Suspect]
     Indication: HYPERTHYROIDISM
  3. PROPRANOLOL [Suspect]
     Indication: HYPERTHYROIDISM

REACTIONS (3)
  - DRUG TOXICITY [None]
  - PULMONARY HAEMORRHAGE [None]
  - TUMOUR LYSIS SYNDROME [None]
